FAERS Safety Report 19394343 (Version 1)
Quarter: 2021Q2

REPORT INFORMATION
  Report Type: Report from Study
  Country: DE (occurrence: DE)
  Receive Date: 20210609
  Receipt Date: 20210609
  Transmission Date: 20210717
  Serious: Yes (Other)
  Sender: FDA-Public Use
  Company Number: DE-GW PHARMA-201903DEGW0617

PATIENT

DRUGS (4)
  1. FRISIUM [Concomitant]
     Active Substance: CLOBAZAM
     Indication: EPILEPSY
     Dosage: 30 MILLIGRAM, QD
     Route: 065
     Dates: start: 2018
  2. EPIDIOLEX [Suspect]
     Active Substance: CANNABIDIOL
     Indication: EPILEPSY
     Dosage: 4.8 MG/KG, 400 MG QD
     Route: 048
     Dates: start: 20190301, end: 20190305
  3. DIACOMIT [Concomitant]
     Active Substance: STIRIPENTOL
     Indication: EPILEPSY
     Dosage: 2000 MILLIGRAM, QD
     Route: 065
     Dates: start: 2018
  4. LAMOTRIGINE. [Concomitant]
     Active Substance: LAMOTRIGINE
     Indication: EPILEPSY
     Dosage: 75 MILLIGRAM, QD
     Route: 065
     Dates: start: 2017, end: 20190304

REACTIONS (3)
  - Speech disorder [Recovering/Resolving]
  - Dizziness [Recovering/Resolving]
  - Fatigue [Recovering/Resolving]

NARRATIVE: CASE EVENT DATE: 20190305
